FAERS Safety Report 13361465 (Version 1)
Quarter: 2017Q1

REPORT INFORMATION
  Report Type: Spontaneous
  Country: SK (occurrence: SK)
  Receive Date: 20170323
  Receipt Date: 20170323
  Transmission Date: 20170429
  Serious: Yes (Other)
  Sender: FDA-Public Use
  Company Number: SK-AMGEN-SVKSP2017041658

PATIENT
  Age: 63 Year
  Sex: Female
  Weight: 59 kg

DRUGS (1)
  1. PROLIA [Suspect]
     Active Substance: DENOSUMAB
     Indication: OSTEOPOROSIS
     Dosage: 60 MG, UNK
     Route: 058
     Dates: start: 20160830, end: 20160830

REACTIONS (4)
  - Facial pain [Recovered/Resolved]
  - Pain in extremity [Recovered/Resolved]
  - Toothache [Recovered/Resolved]
  - Oropharyngeal pain [Recovered/Resolved]
